FAERS Safety Report 5492339-6 (Version None)
Quarter: 2007Q4

REPORT INFORMATION
  Report Type: 
  Country: None (occurrence: None)
  Receive Date: 20071022
  Receipt Date: 20071008
  Transmission Date: 20080405
  Serious: Yes (Life-Threatening, Hospitalization, Other)
  Sender: FDA-Public Use
  Company Number: FR-PFIZER INC-2007009246

PATIENT
  Age: 92 Year
  Sex: Female
  Weight: 59 kg

DRUGS (16)
  1. LYRICA [Suspect]
     Indication: PAIN
     Route: 048
     Dates: start: 20061211, end: 20061212
  2. LYRICA [Suspect]
     Indication: POST HERPETIC NEURALGIA
  3. RETINOL [Concomitant]
  4. BISEPTINE [Concomitant]
  5. ACYCLOVIR [Concomitant]
  6. COAPROVEL [Concomitant]
  7. HYPERIUM [Concomitant]
  8. DETENSIEL [Concomitant]
  9. LOXEN [Concomitant]
  10. RABEPRAZOLE SODIUM [Concomitant]
  11. PROPOFOL [Concomitant]
  12. ACTONEL [Concomitant]
  13. ACEPROMAZINE [Concomitant]
  14. DESLORATADINE [Concomitant]
  15. ALLOPURINOL [Concomitant]
  16. ZELITREX [Concomitant]

REACTIONS (5)
  - ATRIAL FIBRILLATION [None]
  - ATRIAL TACHYCARDIA [None]
  - CARDIAC FAILURE CONGESTIVE [None]
  - SINUS TACHYCARDIA [None]
  - TACHYARRHYTHMIA [None]
